FAERS Safety Report 16607806 (Version 5)
Quarter: 2020Q1

REPORT INFORMATION
  Report Type: Spontaneous
  Country: JP (occurrence: JP)
  Receive Date: 20190722
  Receipt Date: 20200313
  Transmission Date: 20200409
  Serious: Yes (Other)
  Sender: FDA-Public Use
  Company Number: JP-BRISTOL-MYERS SQUIBB COMPANY-BMS-2019-070984

PATIENT
  Age: 61 Year
  Sex: Male

DRUGS (1)
  1. OPDIVO [Suspect]
     Active Substance: NIVOLUMAB
     Indication: METASTATIC RENAL CELL CARCINOMA
     Dosage: UNK
     Route: 041
     Dates: start: 201802, end: 201808

REACTIONS (5)
  - Nephritis [Recovering/Resolving]
  - Thyroiditis [Unknown]
  - Polyarthritis [Recovering/Resolving]
  - Keratitis [Recovering/Resolving]
  - Sialoadenitis [Unknown]

NARRATIVE: CASE EVENT DATE: 2018
